FAERS Safety Report 25244412 (Version 1)
Quarter: 2025Q2

REPORT INFORMATION
  Report Type: Spontaneous
  Country: JP (occurrence: JP)
  Receive Date: 20250428
  Receipt Date: 20250428
  Transmission Date: 20250716
  Serious: Yes (Other)
  Sender: ALKEM
  Company Number: JP-ALKEM LABORATORIES LIMITED-JP-ALKEM-2024-17014

PATIENT
  Age: 45 Year
  Sex: Female

DRUGS (4)
  1. SIROLIMUS [Suspect]
     Active Substance: SIROLIMUS
     Indication: Lymphangioleiomyomatosis
     Dosage: 1 MILLIGRAM, QD
     Route: 048
  2. SIROLIMUS [Suspect]
     Active Substance: SIROLIMUS
     Route: 048
  3. SIROLIMUS [Suspect]
     Active Substance: SIROLIMUS
     Route: 048
  4. SIROLIMUS [Suspect]
     Active Substance: SIROLIMUS
     Route: 048

REACTIONS (2)
  - Mycobacterium abscessus infection [Recovered/Resolved]
  - Pneumonia bacterial [Recovered/Resolved]
